FAERS Safety Report 9108328 (Version 2)
Quarter: 2013Q2

REPORT INFORMATION
  Report Type: Other
  Country: US (occurrence: US)
  Receive Date: 20130222
  Receipt Date: 20130417
  Transmission Date: 20140414
  Serious: Yes (Hospitalization)
  Sender: FDA-Public Use
  Company Number: US-SHIRE-ALL1-2013-00848

PATIENT
  Sex: Male

DRUGS (1)
  1. FIRAZYR [Suspect]
     Indication: PRODUCT USED FOR UNKNOWN INDICATION
     Dosage: 30 MG, UNKNOWN
     Route: 058
     Dates: start: 20121130, end: 201301

REACTIONS (4)
  - Haematemesis [Recovered/Resolved]
  - Abdominal rigidity [Recovered/Resolved]
  - Drug hypersensitivity [Unknown]
  - Drug ineffective [Recovered/Resolved]
